FAERS Safety Report 24799271 (Version 2)
Quarter: 2025Q2

REPORT INFORMATION
  Report Type: Spontaneous
  Country: SG (occurrence: SG)
  Receive Date: 20250102
  Receipt Date: 20250401
  Transmission Date: 20250716
  Serious: Yes (Other)
  Sender: REGENERON
  Company Number: SG-BAYER-2024A182271

PATIENT
  Age: 74 Year
  Sex: Female

DRUGS (1)
  1. EYLEA [Suspect]
     Active Substance: AFLIBERCEPT
     Indication: Polypoidal choroidal vasculopathy
     Route: 031

REACTIONS (3)
  - Retinal haemorrhage [Recovering/Resolving]
  - Rhegmatogenous retinal detachment [Unknown]
  - Subretinal hyperreflective exudation [Recovered/Resolved]
